FAERS Safety Report 9445791 (Version 1)
Quarter: 2013Q3

REPORT INFORMATION
  Report Type: Spontaneous
  Country: DE (occurrence: DE)
  Receive Date: 20130807
  Receipt Date: 20130807
  Transmission Date: 20140515
  Serious: Yes (Hospitalization, Other)
  Sender: FDA-Public Use
  Company Number: GXKR2013DE002611

PATIENT
  Age: 0 Day
  Sex: Female
  Weight: 2.63 kg

DRUGS (4)
  1. LAMOTRIGINE [Suspect]
     Dosage: MATERNAL DOSE: 250 MG/D, SINCE JAN 2008 GRADUALLY INCREASING DOSE, SINCE SEP 2008 175-0-75 MG/D
     Route: 064
     Dates: start: 20080211, end: 20081017
  2. MORPHINE [Suspect]
     Dosage: MATERNAL DOSE:12 [?G/H ]/ EVERY 3RD DAY CHANGE OF PATCHES
     Route: 064
     Dates: start: 20080926, end: 20081015
  3. EUTHYROX [Concomitant]
     Dosage: MATERNAL DOSE: 25 [?G/D ]
     Route: 064
     Dates: start: 20080211, end: 20081017
  4. FOLSAEURE [Concomitant]
     Indication: PROPHYLAXIS OF NEURAL TUBE DEFECT
     Dosage: MATERNAL DOSE: 0.8 [MG/D ]
     Route: 064
     Dates: start: 20080211, end: 20081017

REACTIONS (4)
  - Feeding disorder neonatal [Recovered/Resolved]
  - Neonatal tachypnoea [Recovered/Resolved]
  - Hypoglycaemia neonatal [Recovered/Resolved]
  - Foetal exposure during pregnancy [Recovered/Resolved]
